FAERS Safety Report 7819946-7 (Version None)
Quarter: 2011Q4

REPORT INFORMATION
  Report Type: 
  Country: None (occurrence: None)
  Receive Date: 20111018
  Receipt Date: 20110111
  Transmission Date: 20120403
  Serious: No
  Sender: FDA-Public Use
  Company Number: US-ASTRAZENECA-2011SE01835

PATIENT
  Sex: Male

DRUGS (2)
  1. SYMBICORT [Suspect]
     Dosage: 2 INHALATION 4 TIMES A DAILY
     Route: 055
  2. SYMBICORT [Suspect]
     Dosage: 2 INHALATION 2 TIMES A DAILY
     Route: 055

REACTIONS (2)
  - APHONIA [None]
  - CHRONIC OBSTRUCTIVE PULMONARY DISEASE [None]
